FAERS Safety Report 7556970-6 (Version None)
Quarter: 2011Q2

REPORT INFORMATION
  Report Type: 
  Country: None (occurrence: None)
  Receive Date: 20110620
  Receipt Date: 20110607
  Transmission Date: 20111010
  Serious: Yes (Hospitalization, Other)
  Sender: FDA-Public Use
  Company Number: PHFR2011GB01185

PATIENT
  Sex: Male

DRUGS (4)
  1. RISPERIDONE [Concomitant]
     Indication: SCHIZOPHRENIA
     Dosage: 3 UG, DAILY
     Route: 048
     Dates: start: 20090101
  2. VENLAFAXINE [Concomitant]
     Indication: ANXIETY
     Dosage: 150 MG, DAILY
     Dates: start: 20060101
  3. DIAZEPAM [Concomitant]
     Dosage: 5 MG, QW
     Route: 048
     Dates: start: 20090101
  4. CLOZAPINE [Suspect]
     Indication: SCHIZOPHRENIA
     Dosage: 150 MG, MORNING AND 150 MG, EVENING
     Route: 048
     Dates: start: 20010524, end: 20110201

REACTIONS (3)
  - MENTAL IMPAIRMENT [None]
  - ELECTROCARDIOGRAM ABNORMAL [None]
  - CONGESTIVE CARDIOMYOPATHY [None]
